FAERS Safety Report 20952450 (Version 1)
Quarter: 2022Q2

REPORT INFORMATION
  Report Type: Spontaneous
  Country: US (occurrence: None)
  Receive Date: 20220612
  Receipt Date: 20220612
  Transmission Date: 20220720
  Serious: Yes (Disabling, Other)
  Sender: FDA-Public Use
  Company Number: None

PATIENT
  Age: 24 Year
  Sex: Male
  Weight: 76.5 kg

DRUGS (1)
  1. DEXMETHYLPHENIDATE [Suspect]
     Active Substance: DEXMETHYLPHENIDATE
     Indication: Attention deficit hyperactivity disorder
     Route: 048
     Dates: start: 20211110

REACTIONS (7)
  - Product odour abnormal [None]
  - Product taste abnormal [None]
  - Malaise [None]
  - Nausea [None]
  - Heart rate increased [None]
  - Drug effect faster than expected [None]
  - Suspected product quality issue [None]

NARRATIVE: CASE EVENT DATE: 20220426
